FAERS Safety Report 10993411 (Version 1)
Quarter: 2015Q2

REPORT INFORMATION
  Report Type: Spontaneous
  Country: US (occurrence: None)
  Receive Date: 20150406
  Receipt Date: 20150406
  Transmission Date: 20150821
  Serious: Yes (Life-Threatening)
  Sender: FDA-Public Use
  Company Number: None

PATIENT
  Age: 10 Month
  Sex: Male

DRUGS (2)
  1. VITAMIN D [Concomitant]
     Active Substance: CHOLECALCIFEROL
  2. BABY ORAJEL INSTANT TEETHING PAIN RELIEF [Suspect]
     Active Substance: BENZOCAINE
     Indication: TEETHING
     Dosage: OCCASIONALLY FOR FEW MONTHS

REACTIONS (7)
  - Unresponsive to stimuli [None]
  - Cyanosis [None]
  - Pallor [None]
  - Panic reaction [None]
  - Respiratory arrest [None]
  - Erythema [None]
  - Eye movement disorder [None]

NARRATIVE: CASE EVENT DATE: 20150402
